FAERS Safety Report 7781571-4 (Version None)
Quarter: 2011Q3

REPORT INFORMATION
  Report Type: 
  Country: None (occurrence: None)
  Receive Date: 20110927
  Receipt Date: 20110916
  Transmission Date: 20111222
  Serious: Yes (Other)
  Sender: FDA-Public Use
  Company Number: US-ASTRAZENECA-2011SE55868

PATIENT
  Sex: Female

DRUGS (3)
  1. LISINOPRIL [Suspect]
     Route: 048
  2. TEKTURNA [Suspect]
     Route: 065
     Dates: start: 20110901
  3. AMLODIPINE [Suspect]
     Route: 065

REACTIONS (2)
  - GAIT DISTURBANCE [None]
  - ILL-DEFINED DISORDER [None]
